FAERS Safety Report 10518679 (Version 1)
Quarter: 2014Q4

REPORT INFORMATION
  Report Type: Spontaneous
  Country: US (occurrence: US)
  Receive Date: 20141015
  Receipt Date: 20141015
  Transmission Date: 20150528
  Serious: Yes (Other)
  Sender: FDA-Public Use
  Company Number: US-LEO PHARMA-228176

PATIENT
  Age: 70 Year
  Sex: Male

DRUGS (3)
  1. PICATO [Suspect]
     Active Substance: INGENOL MEBUTATE
     Indication: ACTINIC KERATOSIS
  2. PICATO [Suspect]
     Active Substance: INGENOL MEBUTATE
  3. PICATO [Suspect]
     Active Substance: INGENOL MEBUTATE

REACTIONS (5)
  - Squamous cell carcinoma [Recovered/Resolved]
  - Application site erythema [Recovered/Resolved]
  - Squamous cell carcinoma [Unknown]
  - Application site exfoliation [Recovered/Resolved]
  - Drug administered at inappropriate site [Unknown]
